FAERS Safety Report 8055075-8 (Version None)
Quarter: 2012Q1

REPORT INFORMATION
  Report Type: 
  Country: None (occurrence: None)
  Receive Date: 20120119
  Receipt Date: 20120116
  Transmission Date: 20120608
  Serious: Yes (Death, Other)
  Sender: FDA-Public Use
  Company Number: JP-BAYER-2010-006100

PATIENT
  Age: 73 Year
  Sex: Male
  Weight: 64 kg

DRUGS (5)
  1. NEO-MINOPHAGEN C [Concomitant]
     Dosage: DAILY DOSE 40 ML
     Route: 042
     Dates: start: 20101203, end: 20111117
  2. NEXAVAR [Suspect]
     Indication: HEPATIC NEOPLASM MALIGNANT
     Dosage: DAILY DOSE 400 MG
     Route: 048
     Dates: start: 20101012, end: 20111114
  3. LEVOTHYROXINE SODIUM [Concomitant]
     Dosage: DAILY DOSE 100 ?G
     Route: 048
     Dates: start: 20100514, end: 20111114
  4. URSO 250 [Concomitant]
     Dosage: DAILY DOSE 900 MG
     Route: 048
     Dates: start: 20090612, end: 20111114
  5. LIVACT [Concomitant]
     Dosage: DAILY DOSE 12.45 G
     Route: 048
     Dates: start: 20090323, end: 20111114

REACTIONS (4)
  - ASPARTATE AMINOTRANSFERASE INCREASED [None]
  - HEPATIC FUNCTION ABNORMAL [None]
  - PULMONARY ALVEOLAR HAEMORRHAGE [None]
  - INTERSTITIAL LUNG DISEASE [None]
